FAERS Safety Report 4558543-6 (Version None)
Quarter: 2005Q1

REPORT INFORMATION
  Report Type: 
  Country: None (occurrence: None)
  Receive Date: 20050121
  Receipt Date: 20050111
  Transmission Date: 20050727
  Serious: Yes (Other)
  Sender: FDA-Public Use
  Company Number: US-JNJFOC-20050103827

PATIENT
  Sex: Female

DRUGS (10)
  1. TYLENOL [Suspect]
  2. TYLENOL [Suspect]
     Indication: DRUG USE FOR UNKNOWN INDICATION
     Dosage: ^TAKING EXTRA TYLENOL^
  3. TRACLEER [Suspect]
     Route: 049
  4. TRACLEER [Suspect]
     Route: 049
  5. TRACLEER [Suspect]
     Indication: PULMONARY HYPERTENSION
     Route: 049
  6. LIPITOR [Concomitant]
  7. VIAGRA [Concomitant]
  8. PANTOPRAZOLE [Concomitant]
  9. BEXTRA [Concomitant]
  10. ALLEGRA [Concomitant]

REACTIONS (5)
  - ALANINE AMINOTRANSFERASE INCREASED [None]
  - ASPARTATE AMINOTRANSFERASE INCREASED [None]
  - BLOOD ALKALINE PHOSPHATASE INCREASED [None]
  - DECREASED APPETITE [None]
  - STOMACH DISCOMFORT [None]
